FAERS Safety Report 7082558-X (Version None)
Quarter: 2010Q3

REPORT INFORMATION
  Report Type: 
  Country: None (occurrence: None)
  Receive Date: 20100929
  Receipt Date: 20100701
  Transmission Date: 20110219
  Serious: No
  Sender: FDA-Public Use
  Company Number: US-WYE-H16277710

PATIENT
  Age: 27 Year
  Sex: Female
  Weight: 54.48 kg

DRUGS (4)
  1. PRISTIQ [Suspect]
     Indication: ANXIETY
     Dosage: 50 MG 1X PER 1 DAY, ORAL
     Route: 048
     Dates: start: 20090501, end: 20100601
  2. PRISTIQ [Suspect]
     Indication: ANXIETY
     Dosage: 50 MG 1X PER 1 DAY, ORAL
     Route: 048
     Dates: start: 20100601
  3. YAZ [Suspect]
     Indication: CONTRACEPTION
     Dates: start: 20100601
  4. TRAMADOL HCL [Concomitant]

REACTIONS (2)
  - PRURITUS [None]
  - RASH [None]
